FAERS Safety Report 8160787-1 (Version None)
Quarter: 2012Q1

REPORT INFORMATION
  Report Type: 
  Country: None (occurrence: None)
  Receive Date: 20120223
  Receipt Date: 20120216
  Transmission Date: 20120608
  Serious: No
  Sender: FDA-Public Use
  Company Number: PHHY2012CA011415

PATIENT
  Sex: Male

DRUGS (1)
  1. ZOLEDRONOC ACID [Suspect]
     Indication: OSTEITIS DEFORMANS
     Dosage: 5 MG, UNK
     Route: 042
     Dates: start: 20120201

REACTIONS (7)
  - CHILLS [None]
  - MALAISE [None]
  - HEADACHE [None]
  - ASTHENIA [None]
  - INFLUENZA [None]
  - FATIGUE [None]
  - MYALGIA [None]
